FAERS Safety Report 26053244 (Version 1)
Quarter: 2025Q4

REPORT INFORMATION
  Report Type: Spontaneous
  Country: US (occurrence: None)
  Receive Date: 20251115
  Receipt Date: 20251115
  Transmission Date: 20260117
  Serious: Yes (Other)
  Sender: FDA-CTU
  Company Number: None

PATIENT
  Age: 71 Year
  Sex: Female
  Weight: 63.45 kg

DRUGS (5)
  1. PROLIA [Suspect]
     Active Substance: DENOSUMAB
     Indication: Osteoporosis
     Dates: start: 20251111
  2. chlorohydrothiazide [Concomitant]
  3. MAGNESIUM [Concomitant]
     Active Substance: MAGNESIUM
  4. HERBALS\TURMERIC [Concomitant]
     Active Substance: HERBALS\TURMERIC
  5. CALCIUM [Concomitant]
     Active Substance: CALCIUM

REACTIONS (8)
  - Chills [None]
  - Pain in extremity [None]
  - Arthralgia [None]
  - Back pain [None]
  - Impaired work ability [None]
  - Arthritis [None]
  - Pain in extremity [None]
  - Insomnia [None]

NARRATIVE: CASE EVENT DATE: 20251115
